FAERS Safety Report 12662367 (Version 3)
Quarter: 2016Q3

REPORT INFORMATION
  Report Type: Spontaneous
  Country: US (occurrence: US)
  Receive Date: 20160817
  Receipt Date: 20160909
  Transmission Date: 20161109
  Serious: Yes (Other)
  Sender: FDA-Public Use
  Company Number: US-ASTRAZENECA-2016SE78120

PATIENT
  Age: 58 Year
  Sex: Female
  Weight: 239 kg

DRUGS (25)
  1. CRESTOR [Suspect]
     Active Substance: ROSUVASTATIN CALCIUM
     Indication: BLOOD CHOLESTEROL INCREASED
     Dosage: 40.0MG UNKNOWN
     Route: 048
     Dates: start: 201106, end: 2013
  2. CRESTOR [Suspect]
     Active Substance: ROSUVASTATIN CALCIUM
     Indication: CATHETERISATION CARDIAC
     Dosage: 10.0MG UNKNOWN
     Route: 048
     Dates: start: 201107
  3. METOPROLOL. [Suspect]
     Active Substance: METOPROLOL
     Indication: HEART RATE ABNORMAL
     Route: 048
     Dates: start: 2010
  4. ASPIRIN. [Concomitant]
     Active Substance: ASPIRIN
     Indication: COAGULOPATHY
     Dates: start: 2011
  5. CRESTOR [Suspect]
     Active Substance: ROSUVASTATIN CALCIUM
     Indication: CATHETERISATION CARDIAC
     Dosage: 5.0MG UNKNOWN
     Route: 048
  6. CRESTOR [Suspect]
     Active Substance: ROSUVASTATIN CALCIUM
     Indication: CATHETERISATION CARDIAC
     Dosage: 10.0MG UNKNOWN
     Route: 048
     Dates: start: 201607
  7. CRESTOR [Suspect]
     Active Substance: ROSUVASTATIN CALCIUM
     Indication: BLOOD CHOLESTEROL INCREASED
     Dosage: 10.0MG UNKNOWN
     Route: 048
     Dates: start: 201607
  8. BUDESONIDE. [Suspect]
     Active Substance: BUDESONIDE
     Indication: DYSPNOEA
     Dosage: 0.25 MG, VIA NEBULIZER, TWICE A DAY
     Route: 055
  9. LYRICA [Concomitant]
     Active Substance: PREGABALIN
     Indication: PAIN IN EXTREMITY
     Dosage: 75MG, IN A.M.,50 MG., AT 1 PM, AND 25MG. AT 5 PM
     Dates: start: 2014
  10. CRESTOR [Suspect]
     Active Substance: ROSUVASTATIN CALCIUM
     Indication: CATHETERISATION CARDIAC
     Dosage: 40.0MG UNKNOWN
     Route: 048
     Dates: start: 201106, end: 2013
  11. CRESTOR [Suspect]
     Active Substance: ROSUVASTATIN CALCIUM
     Indication: BLOOD TRIGLYCERIDES ABNORMAL
     Dosage: 40.0MG UNKNOWN
     Route: 048
     Dates: start: 201106, end: 2013
  12. CRESTOR [Suspect]
     Active Substance: ROSUVASTATIN CALCIUM
     Indication: BLOOD TRIGLYCERIDES ABNORMAL
     Dosage: 5.0MG UNKNOWN
     Route: 048
  13. CRESTOR [Suspect]
     Active Substance: ROSUVASTATIN CALCIUM
     Indication: BLOOD CHOLESTEROL INCREASED
     Dosage: 5.0MG UNKNOWN
     Route: 048
  14. CRESTOR [Suspect]
     Active Substance: ROSUVASTATIN CALCIUM
     Indication: BLOOD TRIGLYCERIDES ABNORMAL
     Dosage: 10.0MG UNKNOWN
     Route: 048
     Dates: start: 201607
  15. AMBIEN [Concomitant]
     Active Substance: ZOLPIDEM TARTRATE
     Indication: MUSCULOSKELETAL CHEST PAIN
     Dates: start: 2014
  16. TUDORZA PRESSAIR [Suspect]
     Active Substance: ACLIDINIUM BROMIDE
     Indication: CHRONIC OBSTRUCTIVE PULMONARY DISEASE
     Dosage: 400UG, ONE PUFF TWICE PER DAY
     Route: 055
     Dates: start: 2014
  17. LYRICA [Concomitant]
     Active Substance: PREGABALIN
     Indication: MUSCULOSKELETAL CHEST PAIN
     Dosage: 75MG, IN A.M.,50 MG., AT 1 PM, AND 25MG. AT 5 PM
     Dates: start: 2014
  18. CRESTOR [Suspect]
     Active Substance: ROSUVASTATIN CALCIUM
     Indication: BLOOD CHOLESTEROL ABNORMAL
     Dosage: 10.0MG UNKNOWN
     Route: 048
     Dates: start: 201607
  19. BROVANA [Concomitant]
     Active Substance: ARFORMOTEROL TARTRATE
     Indication: DYSPNOEA
     Dosage: 2 MG., VIA NEBULIZER, TWICE A DAY
     Dates: start: 2013
  20. VITAMIN D [Concomitant]
     Active Substance: CHOLECALCIFEROL
  21. CRESTOR [Suspect]
     Active Substance: ROSUVASTATIN CALCIUM
     Indication: BLOOD CHOLESTEROL ABNORMAL
     Dosage: 40.0MG UNKNOWN
     Route: 048
     Dates: start: 201106, end: 2013
  22. CRESTOR [Suspect]
     Active Substance: ROSUVASTATIN CALCIUM
     Indication: BLOOD CHOLESTEROL ABNORMAL
     Dosage: 5.0MG UNKNOWN
     Route: 048
  23. CRESTOR [Suspect]
     Active Substance: ROSUVASTATIN CALCIUM
     Indication: BLOOD CHOLESTEROL ABNORMAL
     Dosage: 10.0MG UNKNOWN
     Route: 048
     Dates: start: 201107
  24. CRESTOR [Suspect]
     Active Substance: ROSUVASTATIN CALCIUM
     Indication: BLOOD TRIGLYCERIDES ABNORMAL
     Dosage: 10.0MG UNKNOWN
     Route: 048
     Dates: start: 201107
  25. CRESTOR [Suspect]
     Active Substance: ROSUVASTATIN CALCIUM
     Indication: BLOOD CHOLESTEROL INCREASED
     Dosage: 10.0MG UNKNOWN
     Route: 048
     Dates: start: 201107

REACTIONS (23)
  - Choking sensation [Unknown]
  - Nerve injury [Unknown]
  - Blood cholesterol increased [Unknown]
  - Chest discomfort [Unknown]
  - Haemorrhage [Unknown]
  - Coronary artery occlusion [Unknown]
  - Burning sensation [Unknown]
  - Device malfunction [Unknown]
  - Blood triglycerides increased [Unknown]
  - Product taste abnormal [Unknown]
  - Circumstance or information capable of leading to medication error [Unknown]
  - Product quality issue [Unknown]
  - Peripheral artery occlusion [Unknown]
  - Muscular weakness [Unknown]
  - Dyspnoea [Unknown]
  - Carotid artery occlusion [Unknown]
  - Right ventricular failure [Unknown]
  - Limb discomfort [Unknown]
  - Weight increased [Unknown]
  - Drug dose omission [Unknown]
  - Lung disorder [Unknown]
  - Haematoma [Unknown]
  - Body height decreased [Unknown]

NARRATIVE: CASE EVENT DATE: 2011
